FAERS Safety Report 22045540 (Version 1)
Quarter: 2023Q1

REPORT INFORMATION
  Report Type: Spontaneous
  Country: US (occurrence: US)
  Receive Date: 20230228
  Receipt Date: 20230228
  Transmission Date: 20230417
  Serious: Yes (Other)
  Sender: FDA-Public Use
  Company Number: US-JNJFOC-20230253196

PATIENT
  Age: 6 Decade
  Sex: Female

DRUGS (15)
  1. TOPAMAX [Suspect]
     Active Substance: TOPIRAMATE
     Indication: Product used for unknown indication
     Route: 048
     Dates: start: 20180716
  2. ELIQUIS [Concomitant]
     Active Substance: APIXABAN
  3. STADOL [Concomitant]
     Active Substance: BUTORPHANOL TARTRATE
  4. NUBAIN [Concomitant]
     Active Substance: NALBUPHINE HYDROCHLORIDE
  5. CEPHALEXIN [Concomitant]
     Active Substance: CEPHALEXIN
  6. VANCOMYCIN [Concomitant]
     Active Substance: VANCOMYCIN
  7. COREG [Concomitant]
     Active Substance: CARVEDILOL
  8. TOPROL XL [Concomitant]
     Active Substance: METOPROLOL SUCCINATE
  9. MORPHINE [Concomitant]
     Active Substance: MORPHINE
  10. REGLAN [Concomitant]
     Active Substance: METOCLOPRAMIDE HYDROCHLORIDE
  11. TETRACYCLINE [Concomitant]
     Active Substance: TETRACYCLINE
  12. DURAGESIC [Concomitant]
     Active Substance: FENTANYL
  13. VALIUM [Concomitant]
     Active Substance: DIAZEPAM
  14. BETADINE [Concomitant]
     Active Substance: POVIDONE-IODINE
  15. PENICILLIN [Concomitant]
     Active Substance: PENICILLIN

REACTIONS (1)
  - Hallucination [Unknown]
